FAERS Safety Report 7941914-5 (Version None)
Quarter: 2011Q4

REPORT INFORMATION
  Report Type: 
  Country: None (occurrence: None)
  Receive Date: 20111128
  Receipt Date: 20111121
  Transmission Date: 20120403
  Serious: Yes (Hospitalization)
  Sender: FDA-Public Use
  Company Number: US-AMGEN-USASP2011057618

PATIENT
  Age: 62 Year
  Sex: Female
  Weight: 75 kg

DRUGS (4)
  1. PREDNISONE TAB [Concomitant]
     Dosage: 5 MG, BID
  2. METHOTREXATE [Concomitant]
     Dosage: UNK
     Dates: end: 20110401
  3. ENBREL [Suspect]
     Indication: RHEUMATOID ARTHRITIS
     Dosage: 50 MG, QWK
     Dates: start: 20090826, end: 20110401
  4. CORTICOSTEROIDS [Concomitant]
     Dosage: UNK

REACTIONS (6)
  - BREAST COMPLICATION ASSOCIATED WITH DEVICE [None]
  - RHEUMATOID ARTHRITIS [None]
  - HERNIA [None]
  - GASTRIC PERFORATION [None]
  - WOUND [None]
  - ABDOMINAL OPERATION [None]
